FAERS Safety Report 9400303 (Version 1)
Quarter: 2013Q3

REPORT INFORMATION
  Report Type: Spontaneous
  Country: US (occurrence: None)
  Receive Date: 20130712
  Receipt Date: 20130712
  Transmission Date: 20140515
  Serious: Yes (Death, Other)
  Sender: FDA-Public Use
  Company Number: None

PATIENT
  Age: 75 Year
  Sex: Male
  Weight: 145.15 kg

DRUGS (6)
  1. FLOVENT HFA [Suspect]
     Indication: CHRONIC OBSTRUCTIVE PULMONARY DISEASE
     Dosage: 2 PUFFS TO 4 PUFFS PER DR  AS NEEDED PER DR.  ORAL INHALATION
     Route: 055
     Dates: start: 20130313, end: 20130413
  2. FLOVENT HFA [Suspect]
     Indication: LUNG NEOPLASM MALIGNANT
     Dosage: 2 PUFFS TO 4 PUFFS PER DR  AS NEEDED PER DR.  ORAL INHALATION
     Route: 055
     Dates: start: 20130313, end: 20130413
  3. BROVANN [Concomitant]
     Indication: CARDIAC DISORDER
     Route: 048
  4. BUDESONIDE [Concomitant]
  5. VITAMINS/MINERALS [Concomitant]
  6. CRANBERRY PILLS [Concomitant]

REACTIONS (4)
  - Pneumothorax [None]
  - Kidney infection [None]
  - Upper respiratory tract infection [None]
  - Lung disorder [None]
